FAERS Safety Report 5066414-4 (Version None)
Quarter: 2006Q3

REPORT INFORMATION
  Report Type: 
  Country: None (occurrence: None)
  Receive Date: 20060714
  Receipt Date: 20060522
  Transmission Date: 20061208
  Serious: No
  Sender: FDA-Public Use
  Company Number: 2006SP002127

PATIENT
  Age: 68 Year
  Sex: Female
  Weight: 58.9676 kg

DRUGS (8)
  1. LUNESTA [Suspect]
     Indication: SLEEP DISORDER
     Dosage: 3 MG ORAL
     Route: 048
     Dates: start: 20060501
  2. AMOXICILLIN + CLAVULANATE POTASSIUM [Concomitant]
  3. LEVAQUIN [Concomitant]
  4. LUMIGAN [Concomitant]
  5. PEPCID [Concomitant]
  6. PREDNISONE [Concomitant]
  7. VITAMINS [Concomitant]
  8. CALCIUM GLUCONATE [Concomitant]

REACTIONS (2)
  - DRUG INEFFECTIVE [None]
  - INSOMNIA [None]
